FAERS Safety Report 17256796 (Version 1)
Quarter: 2019Q4

REPORT INFORMATION
  Report Type: Spontaneous
  Country: US (occurrence: US)
  Receive Date: 20191217
  Receipt Date: 20191217
  Transmission Date: 20200122
  Serious: No
  Sender: FDA-Public Use
  Company Number: None

PATIENT
  Sex: Female

DRUGS (1)
  1. HUMIRA [Suspect]
     Active Substance: ADALIMUMAB
     Indication: CROHN^S DISEASE
     Dosage: ?          OTHER STRENGTH:80MG/0.8ML;OTHER FREQUENCY:EVERY 14 DAYS;?
     Route: 058
     Dates: start: 20191206

REACTIONS (1)
  - Contusion [None]
